FAERS Safety Report 6278278-1 (Version None)
Quarter: 2009Q3

REPORT INFORMATION
  Report Type: 
  Country: None (occurrence: None)
  Receive Date: 20090722
  Receipt Date: 20090714
  Transmission Date: 20100115
  Serious: Yes (Death, Congenital Anomaly)
  Sender: FDA-Public Use
  Company Number: ZA-AVENTIS-200819358GDDC

PATIENT
  Age: 0 Day

DRUGS (3)
  1. LANTUS [Suspect]
     Dosage: DOSE: 18 IU NOCTE + 5 IU MANE
     Route: 064
     Dates: start: 20050801
  2. APIDRA [Suspect]
     Dosage: DOSE: 8-10 IU MANE,4-8 IU MIDDAY, 5-6 IU SUPPER
     Route: 064
     Dates: start: 20080501
  3. GLUCOPHAGE [Concomitant]
     Dosage: DOSE: UNK
     Route: 064
     Dates: end: 20080501

REACTIONS (5)
  - DRUG EXPOSURE DURING PREGNANCY [None]
  - MATERNAL DRUGS AFFECTING FOETUS [None]
  - POST PROCEDURAL COMPLICATION [None]
  - PULMONARY HYPERTENSIVE CRISIS [None]
  - TRUNCUS ARTERIOSUS PERSISTENT [None]
